FAERS Safety Report 5177469-0 (Version None)
Quarter: 2006Q4

REPORT INFORMATION
  Report Type: 
  Country: None (occurrence: None)
  Receive Date: 20061218
  Receipt Date: 20060721
  Transmission Date: 20070319
  Serious: No
  Sender: FDA-Public Use
  Company Number: US-AMGEN-KDL187227

PATIENT
  Sex: Male

DRUGS (2)
  1. ENBREL [Suspect]
     Indication: PSORIATIC ARTHROPATHY
     Route: 058
     Dates: start: 20050120
  2. METHOTREXATE [Concomitant]
     Dates: start: 20050101

REACTIONS (5)
  - ASTHENIA [None]
  - CHILLS [None]
  - NASAL CONGESTION [None]
  - PAIN [None]
  - PYREXIA [None]
